FAERS Safety Report 12728077 (Version 2)
Quarter: 2017Q2

REPORT INFORMATION
  Report Type: Spontaneous
  Country: FR (occurrence: FR)
  Receive Date: 20160909
  Receipt Date: 20170517
  Transmission Date: 20170830
  Serious: Yes (Hospitalization, Other)
  Sender: FDA-Public Use
  Company Number: FR-GLAXOSMITHKLINE-FR2016GSK131364

PATIENT
  Age: 49 Year
  Sex: Male

DRUGS (18)
  1. ZELITREX [Suspect]
     Active Substance: VALACYCLOVIR HYDROCHLORIDE
     Indication: ANTIBIOTIC PROPHYLAXIS
     Dosage: UNK
     Route: 048
     Dates: start: 201605, end: 20160616
  2. BACTRIM [Suspect]
     Active Substance: SULFAMETHOXAZOLE\TRIMETHOPRIM
     Indication: ANTIBIOTIC PROPHYLAXIS
     Dosage: UNK
     Route: 048
     Dates: start: 201605, end: 20160616
  3. VANCOMYCINE [Suspect]
     Active Substance: VANCOMYCIN
     Indication: APLASIA
     Dosage: UNK
     Route: 042
     Dates: start: 20160603, end: 20160612
  4. MERONEM [Suspect]
     Active Substance: MEROPENEM
     Indication: APLASIA
     Dosage: UNK
     Route: 042
     Dates: start: 20160612, end: 20160616
  5. TAZOCILLINE [Suspect]
     Active Substance: PIPERACILLIN SODIUM\TAZOBACTAM SODIUM
     Dosage: UNK
     Dates: start: 20160603, end: 20160612
  6. TRIFLUCAN [Concomitant]
     Active Substance: FLUCONAZOLE
     Dosage: UNK
     Dates: start: 20160603, end: 20160621
  7. PREDNISOLONE. [Concomitant]
     Active Substance: PREDNISOLONE
     Indication: BURKITT^S LYMPHOMA
     Dosage: UNK
     Dates: start: 201605, end: 20160530
  8. TAZOCILLINE [Suspect]
     Active Substance: PIPERACILLIN SODIUM\TAZOBACTAM SODIUM
     Indication: APLASIA
     Dosage: UNK
     Route: 042
     Dates: start: 20160514, end: 20160518
  9. VINCRISTINE SULFATE. [Concomitant]
     Active Substance: VINCRISTINE SULFATE
     Indication: BURKITT^S LYMPHOMA
     Dosage: UNK
     Dates: start: 201605, end: 20160530
  10. AMIKACINE [Concomitant]
     Active Substance: AMIKACIN
     Indication: APLASIA
     Dosage: UNK
     Route: 042
     Dates: start: 20160514, end: 20160603
  11. FOLINIC ACID [Concomitant]
     Active Substance: LEUCOVORIN
     Indication: BURKITT^S LYMPHOMA
     Dosage: UNK
     Dates: start: 201605, end: 20160530
  12. CYCLOPHOSPHAMIDE. [Concomitant]
     Active Substance: CYCLOPHOSPHAMIDE
     Indication: BURKITT^S LYMPHOMA
     Dosage: UNK
     Dates: start: 201605, end: 20160530
  13. ADRIAMYCIN [Concomitant]
     Active Substance: DOXORUBICIN HYDROCHLORIDE
     Indication: BURKITT^S LYMPHOMA
     Dosage: UNK
     Dates: start: 201605, end: 20160530
  14. CIFLOX [Suspect]
     Active Substance: CIPROFLOXACIN
     Indication: APLASIA
     Dosage: UNK
     Route: 042
     Dates: start: 20160612, end: 20160616
  15. TRIFLUCAN [Concomitant]
     Active Substance: FLUCONAZOLE
     Indication: MUCOSAL INFLAMMATION
     Dosage: UNK
     Route: 048
     Dates: start: 20160514, end: 20160621
  16. AMIKACINE [Concomitant]
     Active Substance: AMIKACIN
     Dosage: UNK
     Dates: start: 20160603, end: 20160603
  17. METHOTREXATE. [Concomitant]
     Active Substance: METHOTREXATE
     Indication: BURKITT^S LYMPHOMA
     Dosage: UNK
     Dates: start: 201605, end: 20160530
  18. RITUXIMAB [Concomitant]
     Active Substance: RITUXIMAB
     Indication: BURKITT^S LYMPHOMA
     Dosage: UNK
     Dates: start: 201605, end: 20160530

REACTIONS (2)
  - Agranulocytosis [Recovered/Resolved]
  - Leukopenia [Recovered/Resolved]

NARRATIVE: CASE EVENT DATE: 20160531
